FAERS Safety Report 13817676 (Version 2)
Quarter: 2017Q4

REPORT INFORMATION
  Report Type: Spontaneous
  Country: US (occurrence: US)
  Receive Date: 20170731
  Receipt Date: 20171129
  Transmission Date: 20180320
  Serious: Yes (Other)
  Sender: FDA-Public Use
  Company Number: US-BAYER-2017-145383

PATIENT
  Age: 25 Year
  Weight: 88.9 kg

DRUGS (2)
  1. MIRENA [Suspect]
     Active Substance: LEVONORGESTREL
     Indication: CONTRACEPTION
  2. MIRENA [Suspect]
     Active Substance: LEVONORGESTREL
     Indication: CONTRACEPTION
     Dosage: 20 MCG/24HR, CONT
     Route: 015
     Dates: start: 20170417, end: 20170417

REACTIONS (2)
  - Uterine perforation [Recovered/Resolved with Sequelae]
  - Device difficult to use [Recovered/Resolved with Sequelae]

NARRATIVE: CASE EVENT DATE: 20170417
